FAERS Safety Report 4853691-5 (Version None)
Quarter: 2005Q4

REPORT INFORMATION
  Report Type: 
  Country: None (occurrence: None)
  Receive Date: 20051212
  Receipt Date: 20051124
  Transmission Date: 20060501
  Serious: Yes (Life-Threatening)
  Sender: FDA-Public Use
  Company Number: NL200511002622

PATIENT
  Age: 48 Year
  Sex: Female

DRUGS (7)
  1. GEMCITABINE HYDROCHLORIDE (GEMCITABINE HYDROCHLORIDE) VIAL [Suspect]
     Indication: METASTASIS
     Dosage: 1800 MG, INTRAVENOUS
     Route: 042
     Dates: start: 20050914, end: 20051110
  2. DURAGESIC-100 [Concomitant]
  3. MORPHINE [Concomitant]
  4. TEMAZEPAM [Concomitant]
  5. ALDACTONE [Concomitant]
  6. PREGABALIN (PREGABALIN) [Concomitant]
  7. NEXIUM [Concomitant]

REACTIONS (5)
  - ASTHENIA [None]
  - BRADYPNOEA [None]
  - HEART RATE INCREASED [None]
  - HYPOTENSION [None]
  - INCORRECT DOSE ADMINISTERED [None]
